FAERS Safety Report 7782993-8 (Version None)
Quarter: 2011Q3

REPORT INFORMATION
  Report Type: 
  Country: None (occurrence: None)
  Receive Date: 20110927
  Receipt Date: 20110927
  Transmission Date: 20111222
  Serious: Yes (Hospitalization)
  Sender: FDA-Public Use
  Company Number: None

PATIENT
  Age: 72 Month
  Sex: Male
  Weight: 92.4 kg

DRUGS (1)
  1. WARFARIN SODIUM [Suspect]
     Dates: start: 20110629

REACTIONS (1)
  - HAEMOGLOBIN DECREASED [None]
